FAERS Safety Report 18855709 (Version 3)
Quarter: 2021Q1

REPORT INFORMATION
  Report Type: Not Available
  Country: US (occurrence: US)
  Receive Date: 20210205
  Receipt Date: 20210304
  Transmission Date: 20210420
  Serious: No
  Sender: FDA-Public Use
  Company Number: US-NEUROCRINE BIOSCIENCES INC.-2021NBI00325

PATIENT
  Age: 23 Year
  Sex: Male

DRUGS (2)
  1. INGREZZA [Suspect]
     Active Substance: VALBENAZINE
     Indication: TOURETTE^S DISORDER
     Route: 048
     Dates: start: 20201029, end: 20210205
  2. INGREZZA [Suspect]
     Active Substance: VALBENAZINE
     Dosage: DOSE DECREASED
     Route: 048
     Dates: start: 202102

REACTIONS (3)
  - Somnolence [Recovered/Resolved]
  - Off label use [Unknown]
  - Fatigue [Recovered/Resolved]

NARRATIVE: CASE EVENT DATE: 20201029
